FAERS Safety Report 18337910 (Version 2)
Quarter: 2021Q2

REPORT INFORMATION
  Report Type: Other
  Country: US (occurrence: US)
  Receive Date: 20201002
  Receipt Date: 20210629
  Transmission Date: 20210717
  Serious: Yes (Other)
  Sender: FDA-Public Use
  Company Number: US-ROCHE-2688699

PATIENT

DRUGS (2)
  1. ATEZOLIZUMAB. [Suspect]
     Active Substance: ATEZOLIZUMAB
     Indication: TRANSITIONAL CELL CARCINOMA METASTATIC
     Route: 041
  2. ROGARATINIB [Suspect]
     Active Substance: ROGARATINIB
     Indication: TRANSITIONAL CELL CARCINOMA METASTATIC
     Route: 048

REACTIONS (6)
  - Lipase increased [Unknown]
  - Diarrhoea [Unknown]
  - Amylase increased [Unknown]
  - Syncope [Unknown]
  - Nausea [Unknown]
  - Rash [Unknown]
